FAERS Safety Report 10360822 (Version 2)
Quarter: 2014Q4

REPORT INFORMATION
  Report Type: Spontaneous
  Country: JP (occurrence: JP)
  Receive Date: 20140804
  Receipt Date: 20141114
  Transmission Date: 20150528
  Serious: Yes (Other)
  Sender: FDA-Public Use
  Company Number: JP-GLAXOSMITHKLINE-B1019893A

PATIENT

DRUGS (2)
  1. VALACICLOVIR HYDROCHLORIDE [Suspect]
     Active Substance: VALACYCLOVIR HYDROCHLORIDE
     Indication: HERPES ZOSTER
     Dosage: UNK UNK, BID
     Route: 048
     Dates: start: 20140717, end: 20140720
  2. VALACICLOVIR HYDROCHLORIDE [Suspect]
     Active Substance: VALACYCLOVIR HYDROCHLORIDE
     Dosage: 1000 MG, BID
     Route: 048
     Dates: start: 20140721, end: 20140722

REACTIONS (9)
  - Disorientation [Recovering/Resolving]
  - Gait disturbance [Recovered/Resolved]
  - Cognitive disorder [Unknown]
  - Dyslalia [Recovered/Resolved]
  - Tremor [Recovered/Resolved]
  - Toxic encephalopathy [Unknown]
  - Memory impairment [Recovered/Resolved]
  - Ataxia [Recovered/Resolved]
  - Dyslalia [Recovering/Resolving]

NARRATIVE: CASE EVENT DATE: 20140722
